FAERS Safety Report 11787364 (Version 1)
Quarter: 2015Q4

REPORT INFORMATION
  Report Type: Spontaneous
  Country: US (occurrence: US)
  Receive Date: 20151130
  Receipt Date: 20151130
  Transmission Date: 20160305
  Serious: No
  Sender: FDA-Public Use
  Company Number: US-PFIZER INC-2015393898

PATIENT
  Age: 58 Year
  Sex: Female
  Weight: 99.79 kg

DRUGS (4)
  1. MYRBETRIQ [Concomitant]
     Active Substance: MIRABEGRON
     Indication: URINARY INCONTINENCE
     Dosage: 25MG TABLET AT NIGHT
  2. CELEBREX [Suspect]
     Active Substance: CELECOXIB
     Dosage: 200 MG, ONE IN THE MORNING AND ONE AT NIGHT
     Route: 048
     Dates: start: 2015
  3. CELECOXIB. [Suspect]
     Active Substance: CELECOXIB
     Indication: ARTHRITIS
     Dosage: 200MG CAPSULE TWICE A DAY, ONE IN THE MORNING AND ONE AT NIGHT
     Route: 048
     Dates: start: 2015, end: 2015
  4. CELEBREX [Suspect]
     Active Substance: CELECOXIB
     Indication: ARTHRITIS
     Dosage: 200 MG, 2X/DAY
     Route: 048

REACTIONS (5)
  - Back pain [Not Recovered/Not Resolved]
  - Pain [Not Recovered/Not Resolved]
  - Arthralgia [Not Recovered/Not Resolved]
  - Bedridden [Not Recovered/Not Resolved]
  - Drug ineffective [Unknown]

NARRATIVE: CASE EVENT DATE: 2015
